FAERS Safety Report 21944708 (Version 4)
Quarter: 2023Q4

REPORT INFORMATION
  Report Type: Spontaneous
  Country: JP (occurrence: None)
  Receive Date: 20230202
  Receipt Date: 20231025
  Transmission Date: 20240110
  Serious: Yes (Other)
  Sender: FDA-Public Use
  Company Number: 2023A023312

PATIENT
  Age: 64 Year
  Sex: Female
  Weight: 46 kg

DRUGS (3)
  1. LYNPARZA [Suspect]
     Active Substance: OLAPARIB
     Indication: Ovarian cancer recurrent
     Route: 048
     Dates: start: 20210227, end: 20210617
  2. LYNPARZA [Suspect]
     Active Substance: OLAPARIB
     Indication: Ovarian cancer recurrent
     Route: 048
     Dates: start: 20210716, end: 20211209
  3. LYNPARZA [Suspect]
     Active Substance: OLAPARIB
     Indication: Ovarian cancer recurrent
     Route: 048
     Dates: start: 20211224, end: 20230121

REACTIONS (2)
  - Interstitial lung disease [Recovered/Resolved]
  - Anaemia [Recovered/Resolved]

NARRATIVE: CASE EVENT DATE: 20210618
